FAERS Safety Report 11052101 (Version 1)
Quarter: 2015Q2

REPORT INFORMATION
  Report Type: Spontaneous
  Country: US (occurrence: None)
  Receive Date: 20150420
  Receipt Date: 20150420
  Transmission Date: 20150821
  Serious: Yes (Hospitalization)
  Sender: FDA-Public Use
  Company Number: None

PATIENT
  Age: 67 Year
  Sex: Male
  Weight: 58.2 kg

DRUGS (1)
  1. COBICISTAT/ELVITEGRAVIR/EMTRICTABINE/TENOFOVIR [Suspect]
     Active Substance: COBICISTAT\ELVITEGRAVIR\EMTRICITABINE\TENOFOVIR
     Indication: HIV INFECTION
     Route: 048
     Dates: start: 20140224, end: 20150316

REACTIONS (2)
  - Acute kidney injury [None]
  - Fanconi syndrome acquired [None]

NARRATIVE: CASE EVENT DATE: 20150316
